FAERS Safety Report 8544004-6 (Version None)
Quarter: 2012Q3

REPORT INFORMATION
  Report Type: 
  Country: None (occurrence: None)
  Receive Date: 20120727
  Receipt Date: 20120724
  Transmission Date: 20120928
  Serious: Yes (Other)
  Sender: FDA-Public Use
  Company Number: UA-PFIZER INC-2012148124

PATIENT
  Age: 35 Year
  Sex: Male

DRUGS (4)
  1. ZIPRASIDONE HYDROCHLORIDE [Suspect]
     Indication: SCHIZOID PERSONALITY DISORDER
     Dosage: 10 ML INJECTIONS, TWICE, WITH INTERVAL OF 2 HOURS
     Dates: start: 20120401
  2. ZIPRASIDONE HYDROCHLORIDE [Suspect]
     Dosage: 80 MG BEFORE NIGHT
  3. ZIPRASIDONE HYDROCHLORIDE [Suspect]
     Dosage: 80 MG, 2X/DAY DURING MEAL
     Dates: start: 20120401
  4. ZIPRASIDONE HYDROCHLORIDE [Suspect]
     Dosage: 40 MG IN THE MORNING AND 80 MG IN THE EVENING

REACTIONS (4)
  - DELUSION [None]
  - HALLUCINATION, AUDITORY [None]
  - HYPERVIGILANCE [None]
  - PYROMANIA [None]
